FAERS Safety Report 24143739 (Version 2)
Quarter: 2024Q4

REPORT INFORMATION
  Report Type: Spontaneous
  Country: US (occurrence: US)
  Receive Date: 20240727
  Receipt Date: 20241008
  Transmission Date: 20250114
  Serious: Yes (Other)
  Sender: ABBVIE
  Company Number: US-ABBVIE-5854208

PATIENT
  Age: 70 Year
  Sex: Female

DRUGS (2)
  1. OZURDEX [Suspect]
     Active Substance: DEXAMETHASONE
     Indication: Cyclitis
     Dosage: TIME INTERVAL: AS NECESSARY: FORM STRENGTH;  0.7MG
     Route: 050
     Dates: start: 20240703
  2. OZURDEX [Suspect]
     Active Substance: DEXAMETHASONE
     Indication: Macular degeneration

REACTIONS (3)
  - Endophthalmitis [Recovering/Resolving]
  - Eye infection staphylococcal [Recovering/Resolving]
  - Intraocular pressure increased [Recovered/Resolved]

NARRATIVE: CASE EVENT DATE: 20240707
